FAERS Safety Report 18343658 (Version 6)
Quarter: 2020Q4

REPORT INFORMATION
  Report Type: Spontaneous
  Country: GB (occurrence: GB)
  Receive Date: 20201005
  Receipt Date: 20201202
  Transmission Date: 20210113
  Serious: Yes (Hospitalization, Other)
  Sender: FDA-Public Use
  Company Number: GB-AKCEA THERAPEUTICS-2020IS001490

PATIENT
  Age: 33 Year
  Sex: Female

DRUGS (2)
  1. ISSD (INTEGRATED SYRINGE SAFETY DEVICE) [Suspect]
     Active Substance: DEVICE
  2. TEGSEDI [Suspect]
     Active Substance: INOTERSEN SODIUM
     Indication: HEREDITARY NEUROPATHIC AMYLOIDOSIS
     Route: 058
     Dates: end: 20201001

REACTIONS (13)
  - Swelling face [Recovering/Resolving]
  - Fatigue [Unknown]
  - Renal impairment [Unknown]
  - Peripheral swelling [Unknown]
  - Circumoral swelling [Recovering/Resolving]
  - Lymphadenopathy [Unknown]
  - Nausea [Unknown]
  - Nephrotic syndrome [Unknown]
  - Glomerulonephritis [Unknown]
  - General physical health deterioration [Unknown]
  - Renal amyloidosis [Unknown]
  - Urine protein/creatinine ratio abnormal [Unknown]
  - Throat tightness [Unknown]

NARRATIVE: CASE EVENT DATE: 20200922
